FAERS Safety Report 12162131 (Version 1)
Quarter: 2016Q1

REPORT INFORMATION
  Report Type: Spontaneous
  Country: US (occurrence: None)
  Receive Date: 20160308
  Receipt Date: 20160308
  Transmission Date: 20160526
  Serious: Yes (Hospitalization)
  Sender: FDA-Public Use
  Company Number: None

PATIENT
  Age: 86 Year
  Sex: Female
  Weight: 57.2 kg

DRUGS (14)
  1. CLYNDAMYCIN [Concomitant]
  2. COLACE [Concomitant]
     Active Substance: DOCUSATE SODIUM
  3. ASPIRIN. [Suspect]
     Active Substance: ASPIRIN
     Indication: CORONARY ARTERY DISEASE
     Route: 048
  4. AVAPRO [Concomitant]
     Active Substance: IRBESARTAN
  5. MIRALAX [Concomitant]
     Active Substance: POLYETHYLENE GLYCOL 3350
  6. ANTIVE RT [Concomitant]
  7. PROTONIX [Concomitant]
     Active Substance: PANTOPRAZOLE SODIUM
  8. KLOR-CON [Concomitant]
     Active Substance: POTASSIUM CHLORIDE
  9. COREG [Concomitant]
     Active Substance: CARVEDILOL
  10. VEICURE [Concomitant]
  11. CRESTOR [Concomitant]
     Active Substance: ROSUVASTATIN CALCIUM
  12. CUPTURELLE [Concomitant]
  13. PLAVIX [Suspect]
     Active Substance: CLOPIDOGREL BISULFATE
     Indication: TRANSIENT ISCHAEMIC ATTACK
     Route: 048
  14. FORCO [Concomitant]

REACTIONS (3)
  - Gastric antral vascular ectasia [None]
  - Gastrointestinal angiodysplasia [None]
  - Anaemia [None]

NARRATIVE: CASE EVENT DATE: 20151107
